FAERS Safety Report 25496863 (Version 1)
Quarter: 2025Q3

REPORT INFORMATION
  Report Type: Spontaneous
  Country: EG (occurrence: EG)
  Receive Date: 20250701
  Receipt Date: 20250701
  Transmission Date: 20251021
  Serious: Yes (Death, Other)
  Sender: Haleon PLC
  Company Number: EG-002147023-NVSC2025EG102665

PATIENT

DRUGS (1)
  1. DICLOFENAC POTASSIUM [Suspect]
     Active Substance: DICLOFENAC POTASSIUM
     Indication: Product used for unknown indication

REACTIONS (1)
  - Death [Fatal]
